FAERS Safety Report 9643139 (Version 2)
Quarter: 2013Q4

REPORT INFORMATION
  Report Type: Spontaneous
  Country: GB (occurrence: GB)
  Receive Date: 20131024
  Receipt Date: 20131024
  Transmission Date: 20140711
  Serious: Yes (Other)
  Sender: FDA-Public Use
  Company Number: GB-PFIZER INC-2013278994

PATIENT
  Age: 10 Year
  Sex: Male
  Weight: 25.9 kg

DRUGS (2)
  1. GENOTROPIN [Suspect]
     Indication: CHARGE SYNDROME
     Dosage: 3 MG, 1X/DAY, EVERY EVENING
     Route: 058
     Dates: start: 201307, end: 201309
  2. GENOTROPIN [Suspect]
     Indication: GROWTH HORMONE DEFICIENCY
     Dosage: 1.2 MG, DAILY, NOCTE
     Route: 058
     Dates: start: 201309

REACTIONS (3)
  - Incorrect dose administered [Recovered/Resolved]
  - Mood altered [Recovered/Resolved]
  - Night sweats [Recovered/Resolved]
